FAERS Safety Report 9128621 (Version 6)
Quarter: 2013Q3

REPORT INFORMATION
  Report Type: Spontaneous
  Country: US (occurrence: US)
  Receive Date: 20130125
  Receipt Date: 20130814
  Transmission Date: 20140515
  Serious: Yes (Hospitalization, Other)
  Sender: FDA-Public Use
  Company Number: US-009507513-1301USA010641

PATIENT
  Sex: Female
  Weight: 55.33 kg

DRUGS (5)
  1. FOSAMAX [Suspect]
     Indication: OSTEOPOROSIS
     Dosage: 70 MG, QW
     Route: 048
  2. FOSAMAX [Suspect]
     Dosage: UNK, QD
     Route: 048
  3. FOSAMAX [Suspect]
     Dosage: 70 MG, QD
     Route: 048
  4. ALENDRONATE SODIUM [Suspect]
     Indication: OSTEOPOROSIS
     Dosage: 70 MG, QW
     Route: 048
     Dates: start: 200804, end: 200902
  5. CENTRUM (MINERALS (UNSPECIFIED) (+) VITAMINS (UNSPECIFIED)) [Concomitant]
     Dosage: UNK, QD
     Dates: start: 1980

REACTIONS (24)
  - Femur fracture [Recovered/Resolved]
  - Open reduction of fracture [Unknown]
  - Fall [Unknown]
  - Hip surgery [Unknown]
  - Vitamin D deficiency [Unknown]
  - Dental prosthesis placement [Unknown]
  - Tooth extraction [Unknown]
  - Hyperlipidaemia [Unknown]
  - Herpes zoster [Unknown]
  - Onychomycosis [Unknown]
  - Chest pain [Unknown]
  - Skin hyperpigmentation [Unknown]
  - Fibrocystic breast disease [Unknown]
  - Osteopenia [Unknown]
  - Anaemia [Recovered/Resolved]
  - Haematoma [Unknown]
  - Osteoarthritis [Unknown]
  - Laceration [Unknown]
  - Drug administration error [Unknown]
  - Blood glucose increased [Unknown]
  - Anaemia [Recovered/Resolved]
  - Vomiting [Recovered/Resolved]
  - Diarrhoea [Recovered/Resolved]
  - Nausea [Recovered/Resolved]
